FAERS Safety Report 12970892 (Version 1)
Quarter: 2016Q4

REPORT INFORMATION
  Report Type: Spontaneous
  Country: US (occurrence: US)
  Receive Date: 20161123
  Receipt Date: 20161123
  Transmission Date: 20170207
  Serious: No
  Sender: FDA-Public Use
  Company Number: US-ASTRAZENECA-2016SF22240

PATIENT
  Sex: Female
  Weight: 79.4 kg

DRUGS (3)
  1. MOVANTIK [Suspect]
     Active Substance: NALOXEGOL OXALATE
     Indication: CONSTIPATION
     Route: 048
  2. DILTIAZEM. [Concomitant]
     Active Substance: DILTIAZEM
  3. MOVANTIK [Suspect]
     Active Substance: NALOXEGOL OXALATE
     Indication: CONSTIPATION
     Route: 048

REACTIONS (7)
  - Product use issue [Unknown]
  - Faeces discoloured [Unknown]
  - Intentional product misuse [Unknown]
  - Peripheral coldness [Unknown]
  - Off label use [Unknown]
  - Feeling abnormal [Unknown]
  - Pain in extremity [Unknown]
